FAERS Safety Report 5469312-7 (Version None)
Quarter: 2007Q3

REPORT INFORMATION
  Report Type: 
  Country: None (occurrence: None)
  Receive Date: 20070927
  Receipt Date: 20070925
  Transmission Date: 20080115
  Serious: Yes (Other)
  Sender: FDA-Public Use
  Company Number: GB-BRISTOL-MYERS SQUIBB COMPANY-13919279

PATIENT
  Sex: Male

DRUGS (1)
  1. FUNGILIN LOZENGES [Suspect]

REACTIONS (1)
  - ANAPHYLACTIC REACTION [None]
